FAERS Safety Report 18134833 (Version 2)
Quarter: 2020Q3

REPORT INFORMATION
  Report Type: Spontaneous
  Country: CN (occurrence: CN)
  Receive Date: 20200811
  Receipt Date: 20200817
  Transmission Date: 20201103
  Serious: Yes (Hospitalization)
  Sender: FDA-Public Use
  Company Number: ALC2020CN006287

PATIENT
  Age: 39 Year
  Sex: Female

DRUGS (1)
  1. ALCAINE [Suspect]
     Active Substance: PROPARACAINE HYDROCHLORIDE
     Indication: LOCAL ANAESTHESIA
     Dosage: 2 DRP, QD
     Route: 065
     Dates: start: 20200729, end: 20200729

REACTIONS (4)
  - Tachypnoea [Recovered/Resolved]
  - Cold sweat [Recovered/Resolved]
  - Pallor [Recovered/Resolved]
  - Chest discomfort [Recovered/Resolved]

NARRATIVE: CASE EVENT DATE: 20200729
